APPROVED DRUG PRODUCT: ACYCLOVIR
Active Ingredient: ACYCLOVIR
Strength: 800MG
Dosage Form/Route: TABLET;ORAL
Application: A075382 | Product #002 | TE Code: AB
Applicant: CARLSBAD TECHNOLOGY INC
Approved: Apr 30, 1999 | RLD: No | RS: No | Type: RX